FAERS Safety Report 6127682-0 (Version None)
Quarter: 2009Q1

REPORT INFORMATION
  Report Type: 
  Country: None (occurrence: None)
  Receive Date: 20090323
  Receipt Date: 20090311
  Transmission Date: 20090719
  Serious: Yes (Hospitalization)
  Sender: FDA-Public Use
  Company Number: US-WYE-H08658509

PATIENT
  Age: 57 Year
  Sex: Female

DRUGS (10)
  1. PHENERGAN [Suspect]
     Indication: NAUSEA
     Dosage: 25 MG EVERY 6 HOURS AS NEEDED
  2. AMBIEN [Concomitant]
     Indication: INSOMNIA
     Dosage: 10 MG, QHS AS NEEDED
     Route: 048
  3. CYCLOBENZAPRINE [Concomitant]
     Dosage: 2.5 MG, TWICE DAILY AS NEEDED
  4. LUNESTA [Concomitant]
     Indication: INSOMNIA
     Dosage: 3 MG QHS AS NEEDED
  5. OPANA ER [Suspect]
     Indication: BACK PAIN
     Dosage: OVERDOSE AMOUNT UNKNOWN
     Route: 048
     Dates: start: 20080413, end: 20080413
  6. OPANA ER [Suspect]
     Indication: PAIN
  7. ZANAFLEX [Concomitant]
     Indication: MUSCLE SPASMS
     Dosage: 2.5 MG TWICE AS DAY AS NEEDED
  8. XANAX [Suspect]
     Dosage: ACCIDENTAL OVERDOSE AMOUNT UNKNOWN
     Route: 048
     Dates: start: 20080413, end: 20080413
  9. TOPAMAX [Concomitant]
     Indication: INTERCOSTAL NEURALGIA
     Route: 048
  10. TOPAMAX [Concomitant]
     Indication: TRIGEMINAL NEURALGIA

REACTIONS (6)
  - BLASTOCYSTIS INFECTION [None]
  - CLOSTRIDIUM DIFFICILE COLITIS [None]
  - DEPRESSED LEVEL OF CONSCIOUSNESS [None]
  - MENTAL STATUS CHANGES [None]
  - MULTIPLE DRUG OVERDOSE ACCIDENTAL [None]
  - URINARY TRACT INFECTION FUNGAL [None]
